FAERS Safety Report 6173461-8 (Version None)
Quarter: 2009Q2

REPORT INFORMATION
  Report Type: 
  Country: None (occurrence: None)
  Receive Date: 20090430
  Receipt Date: 20090422
  Transmission Date: 20091009
  Serious: Yes (Hospitalization)
  Sender: FDA-Public Use
  Company Number: A0650018A

PATIENT
  Age: 42 Year
  Sex: Female
  Weight: 69.5 kg

DRUGS (2)
  1. LAPATINIB [Suspect]
     Dosage: 1250MG PER DAY
     Route: 048
     Dates: start: 20070313
  2. CAPECITABINE [Suspect]
     Dosage: 1650MG TWICE PER DAY
     Route: 048
     Dates: start: 20070313

REACTIONS (7)
  - ASTHENIA [None]
  - CHILLS [None]
  - DYSURIA [None]
  - NEUTROPENIA [None]
  - PYREXIA [None]
  - URINARY TRACT INFECTION [None]
  - UROSEPSIS [None]
